FAERS Safety Report 6315181-2 (Version None)
Quarter: 2009Q3

REPORT INFORMATION
  Report Type: 
  Country: None (occurrence: None)
  Receive Date: 20090819
  Receipt Date: 20090805
  Transmission Date: 20100115
  Serious: Yes (Other)
  Sender: FDA-Public Use
  Company Number: PL-ROCHE-647827

PATIENT
  Sex: Male
  Weight: 74 kg

DRUGS (18)
  1. PEGASYS [Suspect]
     Indication: HEPATITIS C
     Route: 058
     Dates: start: 20080725, end: 20090626
  2. COPEGUS [Suspect]
     Indication: HEPATITIS C
     Dosage: FREQUENCY: DAILY
     Route: 048
     Dates: start: 20080731, end: 20090626
  3. MIRCERA [Suspect]
     Indication: ANAEMIA
     Route: 058
     Dates: start: 20081211
  4. MIRCERA [Suspect]
     Route: 058
     Dates: start: 20090108
  5. MIRCERA [Suspect]
     Route: 058
     Dates: start: 20090205
  6. MIRCERA [Suspect]
     Route: 058
     Dates: start: 20090219
  7. MIRCERA [Suspect]
     Route: 058
     Dates: start: 20090305
  8. MIRCERA [Suspect]
     Route: 058
     Dates: start: 20090402
  9. MIRCERA [Suspect]
     Route: 058
     Dates: start: 20090430
  10. MIRCERA [Suspect]
     Route: 058
     Dates: start: 20090528
  11. MIRCERA [Suspect]
     Route: 058
     Dates: start: 20090625
  12. CELLCEPT [Suspect]
     Indication: RENAL AND LIVER TRANSPLANT
     Dosage: START DATE: MANY YEARS AGO
     Route: 048
  13. ARANESP [Suspect]
     Indication: DRUG USE FOR UNKNOWN INDICATION
     Route: 058
     Dates: start: 20080821, end: 20081120
  14. ENCORTON [Concomitant]
     Indication: RENAL AND LIVER TRANSPLANT
     Dosage: START DATE: MANY YEARS AGO
     Route: 048
  15. PROGRAF [Concomitant]
     Indication: RENAL AND LIVER TRANSPLANT
     Dosage: START DATE: MANY YEARS AGO
     Route: 048
  16. BISOCARD [Concomitant]
     Dosage: START DATE: MANY YEARS AGO
     Route: 048
  17. PRESTARIUM [Concomitant]
     Dosage: START DATE: MANY YEARS AGO
     Route: 048
  18. MILURIT [Concomitant]
     Indication: HYPERURICAEMIA
     Dosage: FREQUENCY: 2X100 MG

REACTIONS (4)
  - ANAEMIA [None]
  - BLOOD COUNT ABNORMAL [None]
  - BONE MARROW FAILURE [None]
  - DRUG INEFFECTIVE [None]
